FAERS Safety Report 7386121-2 (Version None)
Quarter: 2011Q1

REPORT INFORMATION
  Report Type: 
  Country: None (occurrence: None)
  Receive Date: 20110329
  Receipt Date: 20110329
  Transmission Date: 20110831
  Serious: Yes (Hospitalization)
  Sender: FDA-Public Use
  Company Number: None

PATIENT
  Age: 13 Year
  Sex: Male
  Weight: 35 kg

DRUGS (3)
  1. ACETAMINOPHEN [Concomitant]
  2. PEGINTERFERON ALFA-2B [Suspect]
     Indication: NEUROFIBROMATOSIS
     Dosage: 0.34 ML SUBCUT, ONCE WEEK
     Route: 058
     Dates: start: 20100709
  3. CONCERTA [Concomitant]

REACTIONS (6)
  - MUSCULOSKELETAL PAIN [None]
  - INADEQUATE ANALGESIA [None]
  - MUSCLE SPASMS [None]
  - HYPOTENSION [None]
  - NERVE COMPRESSION [None]
  - VOMITING [None]
